FAERS Safety Report 16622564 (Version 1)
Quarter: 2019Q3

REPORT INFORMATION
  Report Type: Report from Study
  Country: None (occurrence: US)
  Receive Date: 20190724
  Receipt Date: 20190724
  Transmission Date: 20191004
  Serious: Yes (Other)
  Sender: FDA-Public Use
  Company Number: US-ABBVIE-19K-163-2830925-00

PATIENT
  Sex: Male
  Weight: 83.54 kg

DRUGS (1)
  1. HUMIRA [Suspect]
     Active Substance: ADALIMUMAB
     Indication: COLITIS ULCERATIVE
     Route: 058
     Dates: start: 201805, end: 201811

REACTIONS (10)
  - Large intestinal obstruction [Recovered/Resolved with Sequelae]
  - Arthropod bite [Recovered/Resolved]
  - Abdominal adhesions [Recovered/Resolved with Sequelae]
  - Colitis [Recovered/Resolved with Sequelae]
  - Drug specific antibody present [Not Recovered/Not Resolved]
  - Weight decreased [Recovered/Resolved]
  - Segmental diverticular colitis [Not Recovered/Not Resolved]
  - Drug resistance [Unknown]
  - Pyrexia [Recovered/Resolved]
  - Vomiting [Unknown]

NARRATIVE: CASE EVENT DATE: 2018
